FAERS Safety Report 17881495 (Version 1)
Quarter: 2020Q2

REPORT INFORMATION
  Report Type: Spontaneous
  Country: US (occurrence: US)
  Receive Date: 20200610
  Receipt Date: 20200610
  Transmission Date: 20200714
  Serious: Yes (Other)
  Sender: FDA-Public Use
  Company Number: US-COLLEGIUM PHARMACEUTICAL, INC.-2019CGM00214

PATIENT
  Age: 73 Year
  Sex: Male
  Weight: 78.46 kg

DRUGS (7)
  1. METOPROLOL. [Concomitant]
     Active Substance: METOPROLOL
  2. ELIQUIS [Concomitant]
     Active Substance: APIXABAN
  3. XTAMPZA ER [Suspect]
     Active Substance: OXYCODONE
     Indication: BACK PAIN
     Dosage: 18 MG, 2X/DAY
     Dates: start: 20190612, end: 20190620
  4. OXYCODONE IR [Concomitant]
     Active Substance: OXYCODONE
  5. ATORVASTATIN [Concomitant]
     Active Substance: ATORVASTATIN
  6. FUROSEMIDE. [Concomitant]
     Active Substance: FUROSEMIDE
  7. ASPIRIN. [Concomitant]
     Active Substance: ASPIRIN

REACTIONS (4)
  - Lethargy [Recovered/Resolved]
  - Palpitations [Recovered/Resolved]
  - Headache [Recovered/Resolved]
  - Dyspnoea [Recovered/Resolved]

NARRATIVE: CASE EVENT DATE: 201906
